FAERS Safety Report 16642367 (Version 1)
Quarter: 2019Q3

REPORT INFORMATION
  Report Type: Spontaneous
  Country: US (occurrence: US)
  Receive Date: 20190727
  Receipt Date: 20190727
  Transmission Date: 20191004
  Serious: No
  Sender: FDA-Public Use
  Company Number: None

PATIENT
  Age: 48 Year
  Sex: Female
  Weight: 99 kg

DRUGS (2)
  1. AIMOVIG [Suspect]
     Active Substance: ERENUMAB-AOOE
     Indication: MIGRAINE
     Dates: start: 20190503, end: 20190703
  2. AIMOVIG [Suspect]
     Active Substance: ERENUMAB-AOOE
     Indication: VERTIGO
     Dates: start: 20190503, end: 20190703

REACTIONS (4)
  - Depression [None]
  - Suicidal ideation [None]
  - Arthralgia [None]
  - Myalgia [None]

NARRATIVE: CASE EVENT DATE: 20190703
